FAERS Safety Report 17041634 (Version 2)
Quarter: 2020Q2

REPORT INFORMATION
  Report Type: Spontaneous
  Country: CA (occurrence: CA)
  Receive Date: 20191118
  Receipt Date: 20200611
  Transmission Date: 20200713
  Serious: Yes (Death, Life-Threatening, Hospitalization, Other)
  Sender: FDA-Public Use
  Company Number: CA-AUROBINDO-AUR-APL-2019-072807

PATIENT
  Age: 85 Year
  Sex: Male

DRUGS (4)
  1. INVANZ [Interacting]
     Active Substance: ERTAPENEM SODIUM
     Indication: LOCALISED INFECTION
     Dosage: UNK
     Route: 042
  2. CEPHALEXIN. [Suspect]
     Active Substance: CEPHALEXIN
     Indication: LOCALISED INFECTION
     Dosage: 0.4 DOSAGE FORM, ONCE A DAY
     Route: 048
  3. CEPHALEXIN TABLETS [Suspect]
     Active Substance: CEPHALEXIN
     Indication: LOCALISED INFECTION
     Dosage: UNK, FOUR TIMES/DAY
     Route: 048
  4. ADALAT CC [Concomitant]
     Active Substance: NIFEDIPINE
     Indication: PRODUCT USED FOR UNKNOWN INDICATION
     Dosage: UNK
     Route: 065

REACTIONS (13)
  - Abdominal discomfort [Fatal]
  - Diarrhoea [Fatal]
  - Drug interaction [Fatal]
  - Lethargy [Fatal]
  - Dehydration [Fatal]
  - Dyspnoea [Fatal]
  - Hypersomnia [Fatal]
  - Loss of consciousness [Fatal]
  - Unresponsive to stimuli [Fatal]
  - Asthenia [Fatal]
  - Malaise [Fatal]
  - Headache [Fatal]
  - Hypotension [Fatal]
